FAERS Safety Report 8842412 (Version 1)
Quarter: 2012Q4

REPORT INFORMATION
  Report Type: Report from Study
  Country: RU (occurrence: RU)
  Receive Date: 20121016
  Receipt Date: 20121016
  Transmission Date: 20130627
  Serious: Yes (Other)
  Sender: FDA-Public Use
  Company Number: RU-ROCHE-1145894

PATIENT
  Age: 62 Year
  Sex: Male

DRUGS (3)
  1. TRASTUZUMAB [Suspect]
     Indication: METASTATIC GASTRIC CANCER
     Route: 065
     Dates: start: 20120523, end: 20120817
  2. CISPLATINE [Concomitant]
     Indication: GASTRIC CANCER
     Route: 065
     Dates: start: 20120523, end: 20120817
  3. FTORAFUR [Concomitant]
     Indication: GASTRIC CANCER
     Dosage: dose: 1-2 g
     Route: 065
     Dates: start: 20120523, end: 20120817

REACTIONS (1)
  - Disease progression [Not Recovered/Not Resolved]
